FAERS Safety Report 5719787-0 (Version None)
Quarter: 2008Q2

REPORT INFORMATION
  Report Type: 
  Country: None (occurrence: None)
  Receive Date: 20080425
  Receipt Date: 20080425
  Transmission Date: 20081010
  Serious: Yes (Hospitalization)
  Sender: FDA-Public Use
  Company Number: None

PATIENT
  Age: 55 Year
  Sex: Male

DRUGS (3)
  1. ASPIRIN [Suspect]
     Indication: DYSLIPIDAEMIA
     Dosage: 81 MG EVERY DAY PO
     Route: 048
     Dates: start: 20050318, end: 20070220
  2. ASPIRIN [Suspect]
     Indication: HYPERTENSION
     Dosage: 81 MG EVERY DAY PO
     Route: 048
     Dates: start: 20050318, end: 20070220
  3. ASPIRIN [Suspect]
     Indication: PROPHYLAXIS
     Dosage: 81 MG EVERY DAY PO
     Route: 048
     Dates: start: 20050318, end: 20070220

REACTIONS (3)
  - DIVERTICULUM [None]
  - GASTRIC HAEMORRHAGE [None]
  - HAEMORRHOIDS [None]
